FAERS Safety Report 5945161-8 (Version None)
Quarter: 2008Q4

REPORT INFORMATION
  Report Type: 
  Country: None (occurrence: None)
  Receive Date: 20081107
  Receipt Date: 20081031
  Transmission Date: 20090506
  Serious: Yes (Hospitalization)
  Sender: FDA-Public Use
  Company Number: A0755432A

PATIENT
  Age: 28 Year
  Sex: Female
  Weight: 77.7 kg

DRUGS (8)
  1. AVANDAMET [Suspect]
     Route: 048
     Dates: start: 20000101, end: 20020101
  2. AVANDIA [Suspect]
     Dosage: 4MG PER DAY
     Route: 048
     Dates: start: 20020101, end: 20080101
  3. ACTOS [Concomitant]
     Dates: start: 20050101
  4. GLUCOPHAGE [Concomitant]
     Dates: start: 20070101
  5. METFORMIN HCL [Concomitant]
     Dates: start: 20070101
  6. MICRONASE [Concomitant]
     Dates: start: 20060101, end: 20070101
  7. COLD MEDICATION [Concomitant]
  8. FLU MEDICATION [Concomitant]

REACTIONS (2)
  - CARDIAC FAILURE CONGESTIVE [None]
  - MYOCARDIAL INFARCTION [None]
